FAERS Safety Report 26118164 (Version 1)
Quarter: 2025Q4

REPORT INFORMATION
  Report Type: Report from Study
  Country: US (occurrence: US)
  Receive Date: 20251203
  Receipt Date: 20251203
  Transmission Date: 20260119
  Serious: No
  Sender: MALLINCKRODT
  Company Number: US-MALLINCKRODT-MNK202507252

PATIENT
  Sex: Male

DRUGS (3)
  1. CORTICOTROPIN [Suspect]
     Active Substance: CORTICOTROPIN
     Indication: Rheumatoid arthritis
     Dosage: UNKNOWN
  2. ALEVE [Concomitant]
     Active Substance: NAPROXEN SODIUM
     Dosage: UNKNOWN
  3. COVID-19 VACCINE [Concomitant]
     Indication: COVID-19 immunisation
     Dosage: UNKNOWN

REACTIONS (10)
  - Fall [Unknown]
  - Nerve injury [Unknown]
  - Nerve compression [Unknown]
  - Influenza like illness [Unknown]
  - Pain in extremity [Unknown]
  - Feeling hot [Unknown]
  - Muscle strain [Unknown]
  - Arthritis [Unknown]
  - Gait disturbance [Unknown]
  - Peripheral swelling [Unknown]
